FAERS Safety Report 7498583-0 (Version None)
Quarter: 2011Q2

REPORT INFORMATION
  Report Type: 
  Country: None (occurrence: None)
  Receive Date: 20110524
  Receipt Date: 20110324
  Transmission Date: 20111010
  Serious: Yes (Other)
  Sender: FDA-Public Use
  Company Number: US-BAYER-201038004NA

PATIENT
  Sex: Female
  Weight: 90 kg

DRUGS (5)
  1. ZEGERID [Concomitant]
     Dosage: 40/1000
     Route: 048
  2. ANALGESICS [Concomitant]
     Indication: PAIN
  3. YASMIN [Suspect]
     Indication: PROPHYLAXIS
  4. YAZ [Suspect]
     Indication: PROPHYLAXIS
     Dosage: UNK
     Dates: start: 20050101, end: 20080101
  5. SYNTHROID [Concomitant]
     Dosage: 25 MCG/24HR, QD
     Route: 048

REACTIONS (4)
  - CHOLECYSTECTOMY [None]
  - GALLBLADDER DISORDER [None]
  - NEPHROLITHIASIS [None]
  - BILIARY DYSKINESIA [None]
